FAERS Safety Report 7572255-6 (Version None)
Quarter: 2011Q2

REPORT INFORMATION
  Report Type: 
  Country: None (occurrence: None)
  Receive Date: 20110624
  Receipt Date: 20110613
  Transmission Date: 20111010
  Serious: Yes (Other)
  Sender: FDA-Public Use
  Company Number: PHHY2011US31338

PATIENT
  Sex: Male

DRUGS (1)
  1. SANDOSTATIN LAR [Suspect]
     Dosage: 10 MG, QMO
     Route: 030

REACTIONS (3)
  - HYPOKALAEMIA [None]
  - CROHN'S DISEASE [None]
  - AMNESIA [None]
